FAERS Safety Report 9694116 (Version 2)
Quarter: 2013Q4

REPORT INFORMATION
  Report Type: Spontaneous
  Country: US (occurrence: US)
  Receive Date: 20131118
  Receipt Date: 20131119
  Transmission Date: 20140711
  Serious: Yes (Life-Threatening)
  Sender: FDA-Public Use
  Company Number: US-009507513-1311USA005521

PATIENT
  Age: 6 Year
  Sex: Female

DRUGS (1)
  1. SINGULAIR [Suspect]
     Indication: PRODUCT USED FOR UNKNOWN INDICATION
     Route: 048

REACTIONS (2)
  - Drug ineffective [Unknown]
  - Product substitution issue [Unknown]
